FAERS Safety Report 8180104-0 (Version None)
Quarter: 2012Q1

REPORT INFORMATION
  Report Type: 
  Country: None (occurrence: None)
  Receive Date: 20120302
  Receipt Date: 20120302
  Transmission Date: 20120608
  Serious: Yes (Other)
  Sender: FDA-Public Use
  Company Number: None

PATIENT
  Age: 90 Year
  Sex: Male
  Weight: 81.193 kg

DRUGS (1)
  1. ANDRODERM [Suspect]
     Indication: HYPOGONADISM
     Dates: start: 20111115, end: 20111223

REACTIONS (2)
  - RASH [None]
  - BURNING SENSATION [None]
